FAERS Safety Report 13765050 (Version 3)
Quarter: 2017Q3

REPORT INFORMATION
  Report Type: Report from Study
  Country: US (occurrence: US)
  Receive Date: 20170718
  Receipt Date: 20170731
  Transmission Date: 20171127
  Serious: Yes (Hospitalization, Other)
  Sender: FDA-Public Use
  Company Number: US-ALEXION PHARMACEUTICALS INC.-A201707920

PATIENT
  Sex: Female

DRUGS (1)
  1. STRENSIQ [Suspect]
     Active Substance: ASFOTASE ALFA
     Indication: HYPOPHOSPHATASIA
     Dosage: UNK
     Route: 058

REACTIONS (7)
  - Asthenia [Unknown]
  - Cholangitis [Unknown]
  - Chills [Unknown]
  - Abdominal discomfort [Unknown]
  - Malaise [Unknown]
  - Hyperhidrosis [Unknown]
  - Pyrexia [Unknown]
